FAERS Safety Report 9852459 (Version 1)
Quarter: 2014Q1

REPORT INFORMATION
  Report Type: Spontaneous
  Country: US (occurrence: None)
  Receive Date: 20140128
  Receipt Date: 20140128
  Transmission Date: 20141002
  Serious: Yes (Disabling)
  Sender: FDA-Public Use
  Company Number: None

PATIENT
  Age: 29 Year
  Sex: Female
  Weight: 56.7 kg

DRUGS (1)
  1. BACTRIM [Suspect]
     Indication: KIDNEY INFECTION
     Route: 048

REACTIONS (4)
  - Vision blurred [None]
  - Visual acuity reduced [None]
  - Dry eye [None]
  - Product substitution issue [None]
